FAERS Safety Report 15239972 (Version 2)
Quarter: 2019Q4

REPORT INFORMATION
  Report Type: Report from Study
  Country: CA (occurrence: CA)
  Receive Date: 20180803
  Receipt Date: 20191112
  Transmission Date: 20200122
  Serious: Yes (Hospitalization, Other)
  Sender: FDA-Public Use
  Company Number: CA-TAKEDA-2018MPI010121

PATIENT
  Age: 58 Year
  Sex: Male

DRUGS (3)
  1. IXAZOMIB [Suspect]
     Active Substance: IXAZOMIB
     Indication: PLASMA CELL MYELOMA
     Dosage: 3 MILLIGRAM
     Route: 048
     Dates: start: 20180717
  2. DEXAMETHASONE. [Suspect]
     Active Substance: DEXAMETHASONE
     Indication: PLASMA CELL MYELOMA
     Dosage: UNK
     Route: 065
  3. POMALYST [Suspect]
     Active Substance: POMALIDOMIDE
     Indication: PLASMA CELL MYELOMA
     Dosage: UNK
     Route: 065

REACTIONS (6)
  - Epistaxis [Unknown]
  - Muscle atrophy [Unknown]
  - Asthenia [Unknown]
  - Constipation [Unknown]
  - Infection [Unknown]
  - Diarrhoea [Unknown]

NARRATIVE: CASE EVENT DATE: 20180728
